FAERS Safety Report 12162927 (Version 1)
Quarter: 2016Q1

REPORT INFORMATION
  Report Type: Spontaneous
  Country: US (occurrence: US)
  Receive Date: 20160309
  Receipt Date: 20160309
  Transmission Date: 20160526
  Serious: Yes (Other)
  Sender: FDA-Public Use
  Company Number: US-GLAXOSMITHKLINE-US2016031718

PATIENT
  Sex: Female

DRUGS (1)
  1. SENSODYNE REPAIR AND PROTECT [Suspect]
     Active Substance: STANNOUS FLUORIDE
     Indication: SENSITIVITY OF TEETH
     Dosage: UNK
     Dates: start: 20160229, end: 20160301

REACTIONS (12)
  - Glossodynia [Not Recovered/Not Resolved]
  - Toothache [Recovering/Resolving]
  - Gingival blister [Recovered/Resolved]
  - Tongue blistering [Recovered/Resolved]
  - Oral mucosal blistering [Recovered/Resolved]
  - Gingival pain [Not Recovered/Not Resolved]
  - Tongue ulceration [Recovered/Resolved]
  - Oropharyngeal blistering [Recovered/Resolved]
  - Gingival disorder [Not Recovered/Not Resolved]
  - Oropharyngeal pain [Recovering/Resolving]
  - Lip pain [Not Recovered/Not Resolved]
  - Hypersensitivity [Recovering/Resolving]

NARRATIVE: CASE EVENT DATE: 20160229
